FAERS Safety Report 19641842 (Version 4)
Quarter: 2021Q3

REPORT INFORMATION
  Report Type: Spontaneous
  Country: CZ (occurrence: CZ)
  Receive Date: 20210731
  Receipt Date: 20210914
  Transmission Date: 20211014
  Serious: Yes (Hospitalization, Other)
  Sender: FDA-Public Use
  Company Number: CZ-AUROBINDO-AUR-APL-2021-029920

PATIENT
  Age: 63 Year
  Sex: Female

DRUGS (13)
  1. QUETIAPINE. [Suspect]
     Active Substance: QUETIAPINE
     Indication: MULTIMORBIDITY
     Dosage: 400 MILLIGRAM
     Route: 065
  2. ESCITALOPRAM OXALATE. [Suspect]
     Active Substance: ESCITALOPRAM OXALATE
     Indication: MULTIMORBIDITY
  3. ARIPIPRAZOLE. [Suspect]
     Active Substance: ARIPIPRAZOLE
     Indication: MULTIMORBIDITY
  4. OLANZAPINE. [Suspect]
     Active Substance: OLANZAPINE
     Indication: MULTIMORBIDITY
  5. ARIPIPRAZOLE. [Suspect]
     Active Substance: ARIPIPRAZOLE
     Indication: PSYCHOTIC DISORDER
  6. OLANZAPINE. [Suspect]
     Active Substance: OLANZAPINE
     Indication: DELUSION
  7. ARIPIPRAZOLE. [Suspect]
     Active Substance: ARIPIPRAZOLE
     Indication: ATTENTION DEFICIT HYPERACTIVITY DISORDER
     Dosage: 15 MILLIGRAM, ONCE A DAY(15 MG, QD)
     Route: 065
  8. ESCITALOPRAM OXALATE. [Suspect]
     Active Substance: ESCITALOPRAM OXALATE
     Indication: ATTENTION DEFICIT HYPERACTIVITY DISORDER
     Dosage: 10 MILLIGRAM
     Route: 065
  9. AGOMELATIN [Suspect]
     Active Substance: AGOMELATINE
     Indication: AFFECTIVE DISORDER
     Dosage: 25 MILLIGRAM (DOSES 25?50 MG )
     Route: 065
  10. QUETIAPINE. [Suspect]
     Active Substance: QUETIAPINE
     Indication: ATTENTION DEFICIT HYPERACTIVITY DISORDER
  11. OLANZAPINE. [Suspect]
     Active Substance: OLANZAPINE
     Indication: ATTENTION DEFICIT HYPERACTIVITY DISORDER
     Dosage: 20 MILLIGRAM
     Route: 065
  12. OLANZAPINE. [Suspect]
     Active Substance: OLANZAPINE
     Indication: HALLUCINATION, AUDITORY
  13. PREGABALINE [Suspect]
     Active Substance: PREGABALIN
     Indication: PSYCHOTIC DISORDER
     Dosage: 150 MILLIGRAM, ONCE A DAY
     Route: 065

REACTIONS (23)
  - Weight increased [Recovering/Resolving]
  - Central obesity [Recovering/Resolving]
  - Depression [Recovering/Resolving]
  - Psychiatric decompensation [Recovered/Resolved]
  - Accelerated hypertension [Recovered/Resolved]
  - Behaviour disorder [Recovered/Resolved]
  - Drug ineffective [Unknown]
  - Type 2 diabetes mellitus [Recovering/Resolving]
  - Schizoaffective disorder [Recovered/Resolved]
  - Therapeutic product effect incomplete [Unknown]
  - Dysphoria [Recovered/Resolved]
  - Euphoric mood [Recovered/Resolved]
  - Sedation [Unknown]
  - Psychotic disorder [Recovering/Resolving]
  - Delusion [Recovered/Resolved]
  - Hallucination, auditory [Recovered/Resolved]
  - Somnolence [Recovered/Resolved]
  - Akathisia [Recovered/Resolved]
  - Asthenia [Recovered/Resolved]
  - Irritability [Recovered/Resolved]
  - Sleep deficit [Recovered/Resolved]
  - Tardive dyskinesia [Recovered/Resolved]
  - Affective disorder [Recovered/Resolved]
